FAERS Safety Report 25671457 (Version 11)
Quarter: 2025Q4

REPORT INFORMATION
  Report Type: Spontaneous
  Country: US (occurrence: US)
  Receive Date: 20250812
  Receipt Date: 20251107
  Transmission Date: 20260117
  Serious: No
  Sender: PFIZER
  Company Number: US-PFIZER INC-202500157180

PATIENT
  Age: 49 Year
  Sex: Male
  Weight: 79.365 kg

DRUGS (4)
  1. GENOTROPIN [Suspect]
     Active Substance: SOMATROPIN
     Indication: Growth hormone deficiency
     Dosage: 0.8 MG
  2. GENOTROPIN [Suspect]
     Active Substance: SOMATROPIN
     Dosage: 0.6 MG
     Route: 058
  3. GENOTROPIN [Suspect]
     Active Substance: SOMATROPIN
     Dosage: 0.4 MG, 1X/DAY
     Route: 058
  4. GENOTROPIN [Suspect]
     Active Substance: SOMATROPIN
     Dosage: 0.4 MG - 7 DAYS PER WEEK
     Route: 058

REACTIONS (4)
  - Device information output issue [Unknown]
  - Device leakage [Unknown]
  - Device power source issue [Unknown]
  - Device use issue [Unknown]

NARRATIVE: CASE EVENT DATE: 20250701
